FAERS Safety Report 8476414-X (Version None)
Quarter: 2012Q2

REPORT INFORMATION
  Report Type: 
  Country: None (occurrence: None)
  Receive Date: 20120628
  Receipt Date: 20120621
  Transmission Date: 20120825
  Serious: Yes (Hospitalization, Other)
  Sender: FDA-Public Use
  Company Number: PHHO2012IT009478

PATIENT
  Sex: Female
  Weight: 76 kg

DRUGS (8)
  1. ENALAPRIL MALEATE [Suspect]
     Indication: CARDIAC FAILURE
     Dosage: CODE NOT BROKEN
     Route: 048
  2. LANOXIN [Suspect]
     Dosage: 0.062 MG, UNK
     Route: 048
  3. DOXAZOSIN MESYLATE [Concomitant]
     Indication: HYPERTENSION
     Dosage: 2 MG, UNK
     Route: 048
  4. BISOPROLOL FUMARATE [Suspect]
     Dosage: 5 MG, UNK
     Route: 048
  5. BLINDED ALISKIREN [Suspect]
     Indication: CARDIAC FAILURE
     Dosage: CODE NOT BROKEN
     Route: 048
  6. SINTROM [Concomitant]
     Indication: ATRIAL FIBRILLATION
     Dosage: ACCORDING AS INR
  7. FUROSEMIDE [Concomitant]
     Indication: CARDIAC FAILURE
     Dosage: 25 MG, BID
     Route: 048
  8. BLINDED NO TREATMENT RECEIVED [Suspect]
     Indication: CARDIAC FAILURE
     Dosage: CODE NOT BROKEN
     Route: 048

REACTIONS (1)
  - ATRIAL FIBRILLATION [None]
